FAERS Safety Report 23856223 (Version 3)
Quarter: 2024Q2

REPORT INFORMATION
  Report Type: Spontaneous
  Country: JP (occurrence: JP)
  Receive Date: 20240515
  Receipt Date: 20240627
  Transmission Date: 20240715
  Serious: Yes (Other)
  Sender: FDA-Public Use
  Company Number: JP-BRISTOL-MYERS SQUIBB COMPANY-2024-073690

PATIENT
  Age: 75 Year
  Sex: Male
  Weight: 52.7 kg

DRUGS (9)
  1. REVLIMID [Suspect]
     Active Substance: LENALIDOMIDE
     Indication: Follicular lymphoma
     Dates: start: 20230614, end: 20230704
  2. RITUXIMAB [Suspect]
     Active Substance: RITUXIMAB
     Indication: Follicular lymphoma
     Dates: start: 20230626
  3. RITUXIMAB [Suspect]
     Active Substance: RITUXIMAB
     Dates: start: 20230703
  4. RITUXIMAB [Suspect]
     Active Substance: RITUXIMAB
     Dates: start: 20230712
  5. RITUXIMAB [Suspect]
     Active Substance: RITUXIMAB
     Dates: start: 20230719
  6. RITUXIMAB [Suspect]
     Active Substance: RITUXIMAB
     Dates: start: 20230727
  7. RITUXIMAB [Suspect]
     Active Substance: RITUXIMAB
     Dates: start: 20230810
  8. RITUXIMAB [Suspect]
     Active Substance: RITUXIMAB
     Dates: start: 20230907
  9. RITUXIMAB [Suspect]
     Active Substance: RITUXIMAB
     Dates: start: 20231012

REACTIONS (2)
  - COVID-19 [Unknown]
  - Urethral stenosis [Unknown]

NARRATIVE: CASE EVENT DATE: 20230101
